FAERS Safety Report 5449420-7 (Version None)
Quarter: 2007Q3

REPORT INFORMATION
  Report Type: 
  Country: None (occurrence: None)
  Receive Date: 20070911
  Receipt Date: 20070830
  Transmission Date: 20080115
  Serious: Yes (Other)
  Sender: FDA-Public Use
  Company Number: GB-PFIZER INC-2007073210

PATIENT
  Sex: Male

DRUGS (1)
  1. CHAMPIX [Suspect]
     Indication: SMOKING CESSATION THERAPY
     Route: 048

REACTIONS (7)
  - CHILLS [None]
  - DEPRESSION [None]
  - DISABILITY [None]
  - HAEMATEMESIS [None]
  - HEADACHE [None]
  - MENTAL STATUS CHANGES [None]
  - VOMITING [None]
